FAERS Safety Report 9285527 (Version 1)
Quarter: 2013Q2

REPORT INFORMATION
  Report Type: Spontaneous
  Country: US (occurrence: US)
  Receive Date: 20130513
  Receipt Date: 20130513
  Transmission Date: 20140414
  Serious: No
  Sender: FDA-Public Use
  Company Number: US-PFIZER INC-2013142456

PATIENT
  Sex: Female

DRUGS (1)
  1. LATANOPROST [Suspect]
     Dosage: UNK
     Route: 047

REACTIONS (3)
  - Dry eye [Unknown]
  - Mydriasis [Unknown]
  - Product container issue [Unknown]
